FAERS Safety Report 19987783 (Version 5)
Quarter: 2022Q2

REPORT INFORMATION
  Report Type: Report from Study
  Country: PT (occurrence: PT)
  Receive Date: 20211022
  Receipt Date: 20220425
  Transmission Date: 20220721
  Serious: Yes (Life-Threatening)
  Sender: FDA-Public Use
  Company Number: PT-SA-SAC20211021000333

PATIENT
  Age: 11 Year
  Sex: Male
  Weight: 30.1 kg

DRUGS (23)
  1. ISATUXIMAB [Suspect]
     Active Substance: ISATUXIMAB
     Indication: Acute lymphocytic leukaemia
     Dosage: 20 MG/KG, QOW
     Route: 042
     Dates: start: 20211011, end: 20211011
  2. ISATUXIMAB [Suspect]
     Active Substance: ISATUXIMAB
     Dosage: 20 MG/KG, QW
     Route: 042
     Dates: start: 20210811, end: 20210811
  3. METHOTREXATE [Suspect]
     Active Substance: METHOTREXATE
     Indication: Acute lymphocytic leukaemia
     Dosage: 1000 MG/KG DAY 510
     Route: 042
  4. METHOTREXATE [Suspect]
     Active Substance: METHOTREXATE
     Dosage: 1000 MG/KG DAY 1
     Route: 042
  5. CYTARABINE [Suspect]
     Active Substance: CYTARABINE
     Indication: Acute lymphocytic leukaemia
     Dosage: ON DAY 510
  6. CYTARABINE [Suspect]
     Active Substance: CYTARABINE
     Dosage: ON DAY 1
  7. VINCRISTINE SULFATE [Suspect]
     Active Substance: VINCRISTINE SULFATE
     Indication: Acute lymphocytic leukaemia
     Dosage: 1.5 MG/M2 DAY 38
  8. VINCRISTINE SULFATE [Suspect]
     Active Substance: VINCRISTINE SULFATE
     Dosage: 1.5 MG/M2, ON DAYS 10, 17, 24, AND 31
  9. CYCLOPHOSPHAMIDE [Suspect]
     Active Substance: CYCLOPHOSPHAMIDE
     Indication: Acute lymphocytic leukaemia
     Dosage: 440 MG/M2, ON DAYS 50 TO 54
     Route: 042
     Dates: start: 20211004, end: 20211008
  10. ETOPOSIDE [Suspect]
     Active Substance: ETOPOSIDE
     Indication: Acute lymphocytic leukaemia
     Dosage: 100 MG/M2, ON DAYS 50 TO 54
     Dates: start: 20211004, end: 20211008
  11. FLUDARABINE [Suspect]
     Active Substance: FLUDARABINE PHOSPHATE
     Indication: Acute lymphocytic leukaemia
  12. MONTELUKAST [Concomitant]
     Active Substance: MONTELUKAST SODIUM
     Indication: Prophylaxis
     Dosage: TOTAL DAILY DOSE 5 MG
     Route: 048
     Dates: start: 20211011, end: 20211011
  13. ACETAMINOPHEN [Concomitant]
     Active Substance: ACETAMINOPHEN
     Indication: Prophylaxis
     Dosage: TOTAL DAILY DOSE500 MG
     Route: 048
     Dates: start: 20211011, end: 20211011
  14. CLEMASTINE [Concomitant]
     Active Substance: CLEMASTINE
     Indication: Prophylaxis
     Dosage: TOTAL DAILY DOSE 0.8 MG
     Route: 042
     Dates: start: 20211011, end: 20211011
  15. DEXAMETHASONE [Concomitant]
     Active Substance: DEXAMETHASONE
     Indication: Prophylaxis
     Dosage: TOTAL DAILY DOSE: 11 MG
     Route: 042
     Dates: start: 20211011, end: 20211011
  16. PIPERACILLIN [Concomitant]
     Active Substance: PIPERACILLIN
     Dosage: UNK
     Route: 042
     Dates: start: 20211014, end: 20211026
  17. TAZOBACTAM [Concomitant]
     Active Substance: TAZOBACTAM
     Dosage: UNK
     Route: 042
     Dates: start: 20211014, end: 20211026
  18. AMIKACIN [Concomitant]
     Active Substance: AMIKACIN
     Dosage: UNK
     Route: 042
     Dates: start: 20211014, end: 20211018
  19. FENTANYL [Concomitant]
     Active Substance: FENTANYL
     Dosage: UNK
     Route: 062
     Dates: start: 20211013, end: 20211018
  20. MORPHINE [Concomitant]
     Active Substance: MORPHINE
     Dosage: UNK
     Route: 048
     Dates: start: 20211013, end: 20211013
  21. NISTATIN [Concomitant]
     Active Substance: NYSTATIN
     Dosage: UNK
     Route: 049
     Dates: start: 20211011, end: 20211015
  22. LIDOCAINE [Concomitant]
     Active Substance: LIDOCAINE
     Dosage: UNK
     Route: 049
     Dates: start: 20211011, end: 20211015
  23. CALCIUM PHOSPHATE [Concomitant]
     Active Substance: CALCIUM PHOSPHATE
     Dosage: UNK
     Route: 049
     Dates: start: 20211013, end: 20211018

REACTIONS (1)
  - Pneumocystis jirovecii pneumonia [Recovered/Resolved]

NARRATIVE: CASE EVENT DATE: 20211017
